FAERS Safety Report 21794853 (Version 8)
Quarter: 2025Q1

REPORT INFORMATION
  Report Type: Spontaneous
  Country: US (occurrence: US)
  Receive Date: 20221229
  Receipt Date: 20250220
  Transmission Date: 20250409
  Serious: No
  Sender: PFIZER
  Company Number: US-PFIZER INC-2021086574

PATIENT
  Age: 67 Year
  Sex: Female
  Weight: 73.787 kg

DRUGS (17)
  1. IBRANCE [Suspect]
     Active Substance: PALBOCICLIB
     Indication: Breast cancer female
     Route: 048
     Dates: start: 201808
  2. IBRANCE [Suspect]
     Active Substance: PALBOCICLIB
     Route: 048
  3. IBRANCE [Suspect]
     Active Substance: PALBOCICLIB
  4. EFFEXOR XR [Concomitant]
     Active Substance: VENLAFAXINE HYDROCHLORIDE
  5. XANAX [Concomitant]
     Active Substance: ALPRAZOLAM
  6. PAPAYA ENZYME [AMYLASE;PAPAIN] [Concomitant]
  7. FASLODEX [Concomitant]
     Active Substance: FULVESTRANT
  8. MAGNESIUM [Concomitant]
     Active Substance: MAGNESIUM
  9. HERBALS\TURMERIC [Concomitant]
     Active Substance: HERBALS\TURMERIC
  10. OMEGA 3-6-9 [BORAGO OFFICINALIS OIL;FISH OIL;LINUM USITATISSIMUM OIL] [Concomitant]
  11. ACETAMINOPHEN\TRAMADOL [Concomitant]
     Active Substance: ACETAMINOPHEN\TRAMADOL
  12. GABAPENTIN [Concomitant]
     Active Substance: GABAPENTIN
  13. HYDROCHLOROTHIAZIDE\LISINOPRIL [Concomitant]
     Active Substance: HYDROCHLOROTHIAZIDE\LISINOPRIL
  14. DIAZEPAM [Concomitant]
     Active Substance: DIAZEPAM
  15. AMITRIPTYLINE HYDROCHLORIDE [Concomitant]
     Active Substance: AMITRIPTYLINE HYDROCHLORIDE
  16. NAPROXEN [Concomitant]
     Active Substance: NAPROXEN
  17. LIDOCAINE [Concomitant]
     Active Substance: LIDOCAINE

REACTIONS (4)
  - Neoplasm progression [Unknown]
  - Dental care [Unknown]
  - Off label use [Unknown]
  - Product use issue [Unknown]

NARRATIVE: CASE EVENT DATE: 20180801
